FAERS Safety Report 6716534-0 (Version None)
Quarter: 2010Q2

REPORT INFORMATION
  Report Type: 
  Country: None (occurrence: None)
  Receive Date: 20100507
  Receipt Date: 20100426
  Transmission Date: 20101027
  Serious: Yes (Death, Other)
  Sender: FDA-Public Use
  Company Number: ZA-ELI_LILLY_AND_COMPANY-ZA201004008152

PATIENT
  Age: 52 Year
  Sex: Female

DRUGS (4)
  1. ZYPREXA [Suspect]
     Indication: BIPOLAR I DISORDER
     Dosage: 10 MG, UNK
     Route: 048
     Dates: start: 19980101
  2. ZYPREXA [Suspect]
     Dosage: 5 MG, UNK
     Route: 048
  3. VALPROATE SODIUM [Concomitant]
  4. LAMICTIN [Concomitant]

REACTIONS (1)
  - MYOCARDIAL INFARCTION [None]
